FAERS Safety Report 21859560 (Version 1)
Quarter: 2023Q1

REPORT INFORMATION
  Report Type: Spontaneous
  Country: FR (occurrence: FR)
  Receive Date: 20230113
  Receipt Date: 20230113
  Transmission Date: 20230417
  Serious: Yes (Other)
  Sender: FDA-Public Use
  Company Number: None

PATIENT
  Age: 69 Year
  Sex: Male

DRUGS (5)
  1. IMATINIB [Suspect]
     Active Substance: IMATINIB
     Indication: Penile neoplasm
     Dosage: 400 MILLIGRAM, BID
     Route: 065
  2. IMATINIB [Suspect]
     Active Substance: IMATINIB
     Indication: Metastatic malignant melanoma
  3. DACARBAZINE [Suspect]
     Active Substance: DACARBAZINE
     Indication: Metastatic malignant melanoma
     Dosage: UNK UNK, CYCLE
     Route: 065
  4. DACARBAZINE [Suspect]
     Active Substance: DACARBAZINE
     Indication: Penile neoplasm
  5. NIVOLUMAB [Suspect]
     Active Substance: NIVOLUMAB
     Indication: Penile neoplasm
     Route: 065

REACTIONS (3)
  - Metastasis [Unknown]
  - Disease progression [Unknown]
  - Drug ineffective [Unknown]
